FAERS Safety Report 10613283 (Version 2)
Quarter: 2014Q4

REPORT INFORMATION
  Report Type: Spontaneous
  Country: US (occurrence: US)
  Receive Date: 20141128
  Receipt Date: 20141209
  Transmission Date: 20150529
  Serious: Yes (Other)
  Sender: FDA-Public Use
  Company Number: US-AMGEN-USASP2014092231

PATIENT
  Age: 47 Year
  Sex: Male
  Weight: 117.91 kg

DRUGS (1)
  1. ENBREL [Suspect]
     Active Substance: ETANERCEPT
     Indication: PSORIASIS
     Dosage: UNK UNK, QWK
     Route: 065
     Dates: start: 201309, end: 201410

REACTIONS (4)
  - Weight abnormal [Unknown]
  - Psoriasis [Not Recovered/Not Resolved]
  - Foot deformity [Recovered/Resolved]
  - Drug effect incomplete [Not Recovered/Not Resolved]
